FAERS Safety Report 9361732 (Version 1)
Quarter: 2013Q2

REPORT INFORMATION
  Report Type: Spontaneous
  Country: FR (occurrence: FR)
  Receive Date: 20130621
  Receipt Date: 20130621
  Transmission Date: 20140414
  Serious: Yes (Hospitalization, Other)
  Sender: FDA-Public Use
  Company Number: FR-ABBOTT-13X-056-1107739-00

PATIENT
  Age: 66 Year
  Sex: Male

DRUGS (1)
  1. LIPANTHYL [Suspect]
     Indication: HYPERCHOLESTEROLAEMIA
     Route: 048

REACTIONS (21)
  - Chest pain [Unknown]
  - Pancreatitis acute [Recovered/Resolved]
  - Pain in extremity [Unknown]
  - Dyspnoea exertional [Unknown]
  - Pyrexia [Unknown]
  - Renal failure acute [Unknown]
  - Embolism [Unknown]
  - Pulmonary arterial hypertension [Unknown]
  - Pleural effusion [Unknown]
  - Nephrotic syndrome [Unknown]
  - Multi-organ failure [Unknown]
  - Respiratory distress [Unknown]
  - Hypercholesterolaemia [Unknown]
  - Hypoalbuminaemia [Unknown]
  - Chest pain [Unknown]
  - Enterococcus test positive [Unknown]
  - Liver function test abnormal [Unknown]
  - Deep vein thrombosis [Unknown]
  - Hepatocellular injury [Unknown]
  - Pulmonary embolism [Unknown]
  - Pneumonitis [Unknown]
